FAERS Safety Report 22296612 (Version 1)
Quarter: 2023Q2

REPORT INFORMATION
  Report Type: Report from Study
  Country: US (occurrence: US)
  Receive Date: 20230508
  Receipt Date: 20230508
  Transmission Date: 20230721
  Serious: Yes (Other)
  Sender: FDA-Public Use
  Company Number: US-ABBVIE-4757168

PATIENT
  Sex: Female

DRUGS (1)
  1. SKYRIZI [Suspect]
     Active Substance: RISANKIZUMAB-RZAA
     Indication: Product used for unknown indication
     Route: 058
     Dates: start: 20220927

REACTIONS (6)
  - Surgery [Unknown]
  - Finger deformity [Unknown]
  - Balance disorder [Unknown]
  - Dyspnoea [Unknown]
  - Purpura [Unknown]
  - Arthritis [Unknown]
